FAERS Safety Report 7088347-4 (Version None)
Quarter: 2010Q4

REPORT INFORMATION
  Report Type: 
  Country: None (occurrence: None)
  Receive Date: 20101108
  Receipt Date: 20101027
  Transmission Date: 20110411
  Serious: Yes (Hospitalization, Other)
  Sender: FDA-Public Use
  Company Number: US-ELI_LILLY_AND_COMPANY-US201011000496

PATIENT
  Age: 48 Year
  Sex: Male

DRUGS (1)
  1. EFFIENT [Suspect]
     Indication: THROMBOSIS IN DEVICE
     Dosage: 10 MG, UNKNOWN
     Route: 065

REACTIONS (5)
  - ABDOMINAL DISCOMFORT [None]
  - CORONARY ARTERY RESTENOSIS [None]
  - DRUG DOSE OMISSION [None]
  - MALAISE [None]
  - VOMITING [None]
